FAERS Safety Report 5383736-8 (Version None)
Quarter: 2007Q3

REPORT INFORMATION
  Report Type: 
  Country: None (occurrence: None)
  Receive Date: 20070711
  Receipt Date: 20070703
  Transmission Date: 20080115
  Serious: Yes (Other)
  Sender: FDA-Public Use
  Company Number: PHEH2007US05988

PATIENT
  Age: 57 Year
  Sex: Female

DRUGS (5)
  1. ZELNORM [Suspect]
     Indication: CONSTIPATION
     Dosage: 6 MG, QD
     Route: 048
     Dates: start: 20030401, end: 20060401
  2. CALCIUM CHANNEL BLOCKERS [Concomitant]
  3. OGEN [Concomitant]
     Indication: OESTROGEN REPLACEMENT THERAPY
     Dosage: 1.25 UNK, QD
     Dates: start: 20030101
  4. CRESTOR [Concomitant]
     Indication: LIPIDS INCREASED
     Dosage: 20 MG, QD
     Route: 048
     Dates: start: 20030101
  5. SYNTHROID [Concomitant]
     Dosage: 50 MEQ, QD
     Route: 048
     Dates: start: 20040101

REACTIONS (4)
  - CARDIAC DISORDER [None]
  - CHEST DISCOMFORT [None]
  - GENERAL PHYSICAL CONDITION ABNORMAL [None]
  - TEMPERATURE INTOLERANCE [None]
